FAERS Safety Report 11393111 (Version 1)
Quarter: 2015Q3

REPORT INFORMATION
  Report Type: Spontaneous
  Country: US (occurrence: US)
  Receive Date: 20150818
  Receipt Date: 20150818
  Transmission Date: 20151125
  Serious: Yes (Hospitalization)
  Sender: FDA-Public Use
  Company Number: US-JNJFOC-20150807465

PATIENT
  Sex: Male

DRUGS (1)
  1. INVEGA [Suspect]
     Active Substance: PALIPERIDONE
     Indication: SCHIZOPHRENIA, PARANOID TYPE
     Route: 048
     Dates: end: 20140417

REACTIONS (1)
  - Hospitalisation [Recovered/Resolved]
